FAERS Safety Report 8546481-3 (Version None)
Quarter: 2012Q3

REPORT INFORMATION
  Report Type: 
  Country: None (occurrence: None)
  Receive Date: 20120727
  Receipt Date: 20120712
  Transmission Date: 20120928
  Serious: Yes (Other)
  Sender: FDA-Public Use
  Company Number: FR-ARROW-2012-12689

PATIENT
  Age: 6 Week
  Sex: Male

DRUGS (5)
  1. PREDNISONE TAB [Suspect]
     Indication: RHEUMATOID VASCULITIS
     Dosage: 25 MG, DAILY
     Route: 048
  2. RITUXIMAB [Suspect]
     Indication: RHEUMATOID VASCULITIS
     Dosage: 1 G, EVERY TWO WEEKS
     Route: 042
  3. AZATHIOPRINE [Suspect]
     Indication: RHEUMATOID VASCULITIS
     Dosage: UNK
     Route: 065
  4. CYCLOPHOSPHAMIDE [Suspect]
     Indication: RHEUMATOID VASCULITIS
     Dosage: 500 MG, MONTHLY
     Route: 042
  5. METHYLPREDNISOLONE [Suspect]
     Indication: RHEUMATOID VASCULITIS
     Dosage: 1 G, X 3
     Route: 065

REACTIONS (3)
  - SUBCUTANEOUS ABSCESS [None]
  - CELLULITIS [None]
  - FUSOBACTERIUM INFECTION [None]
